FAERS Safety Report 15919896 (Version 1)
Quarter: 2019Q1

REPORT INFORMATION
  Report Type: Spontaneous
  Country: US (occurrence: US)
  Receive Date: 20190205
  Receipt Date: 20190205
  Transmission Date: 20190417
  Serious: No
  Sender: FDA-Public Use
  Company Number: US-ROCHE-2138136

PATIENT
  Sex: Female
  Weight: 62 kg

DRUGS (1)
  1. XOLAIR [Suspect]
     Active Substance: OMALIZUMAB
     Indication: IDIOPATHIC URTICARIA
     Dosage: BENEATH THE SKIN, USUALLY VIA INJECTION
     Route: 058
     Dates: start: 20180301

REACTIONS (1)
  - Menstruation delayed [Not Recovered/Not Resolved]
